FAERS Safety Report 5072052-X (Version None)
Quarter: 2006Q3

REPORT INFORMATION
  Report Type: 
  Country: None (occurrence: None)
  Receive Date: 20060807
  Receipt Date: 20060704
  Transmission Date: 20061208
  Serious: Yes (Death)
  Sender: FDA-Public Use
  Company Number: JP-AVENTIS-200611952DE

PATIENT
  Age: 34 Year
  Sex: Female

DRUGS (4)
  1. LODOPIN [Suspect]
     Indication: BORDERLINE PERSONALITY DISORDER
     Dosage: DOSE: NOT REPORTED
     Route: 048
  2. SEROQUEL [Suspect]
     Dosage: DOSE: NOT REPORTED
     Route: 048
  3. BROMAZEPAM [Concomitant]
     Dosage: DOSE: NOT REPORTED
     Route: 048
  4. FLUNITRAZEPAM [Concomitant]
     Dosage: DOSE: NOT REPORTED
     Route: 048

REACTIONS (2)
  - ACUTE RESPIRATORY FAILURE [None]
  - SHOCK [None]
